FAERS Safety Report 9256076 (Version 1)
Quarter: 2013Q2

REPORT INFORMATION
  Report Type: Spontaneous
  Country: US (occurrence: US)
  Receive Date: 20130425
  Receipt Date: 20130425
  Transmission Date: 20140414
  Serious: No
  Sender: FDA-Public Use
  Company Number: US-AMGEN-USASP2012019245

PATIENT
  Age: 58 Year
  Sex: Female
  Weight: 119 kg

DRUGS (1)
  1. PEGFILGRASTIM [Suspect]
     Indication: BREAST CANCER
     Dosage: UNK

REACTIONS (1)
  - Ejection fraction decreased [Unknown]
